FAERS Safety Report 18407049 (Version 4)
Quarter: 2020Q4

REPORT INFORMATION
  Report Type: Spontaneous
  Country: US (occurrence: US)
  Receive Date: 20201020
  Receipt Date: 20201029
  Transmission Date: 20210114
  Serious: No
  Sender: FDA-Public Use
  Company Number: US-PFIZER INC-2020319211

PATIENT
  Age: 60 Year
  Sex: Male

DRUGS (2)
  1. EUCRISA [Suspect]
     Active Substance: CRISABOROLE
     Dosage: UNK UNK, DAILY(APPLY TO AFFECTED AREA EVERYDAY)
  2. EUCRISA [Suspect]
     Active Substance: CRISABOROLE
     Indication: DERMATITIS ATOPIC
     Dosage: UNK, 2X/DAY(APPLY TO AFFECTED AREAS ON SKIN TWICE DAILY)
     Route: 061

REACTIONS (1)
  - Therapeutic product effect incomplete [Unknown]
